FAERS Safety Report 17413144 (Version 1)
Quarter: 2020Q1

REPORT INFORMATION
  Report Type: Spontaneous
  Country: US (occurrence: US)
  Receive Date: 20200212
  Receipt Date: 20200212
  Transmission Date: 20200409
  Serious: Yes (Life-Threatening, Hospitalization)
  Sender: FDA-Public Use
  Company Number: None

PATIENT
  Sex: Female
  Weight: 54.88 kg

DRUGS (1)
  1. PARAGARD T 380A [Suspect]
     Active Substance: COPPER
     Dates: start: 20180409

REACTIONS (8)
  - Embedded device [None]
  - Complication of device removal [None]
  - Gait disturbance [None]
  - Pregnancy with contraceptive device [None]
  - Abdominal pain [None]
  - Insomnia [None]
  - Vaginal haemorrhage [None]
  - Weight decreased [None]
